FAERS Safety Report 24457886 (Version 1)
Quarter: 2024Q4

REPORT INFORMATION
  Report Type: Report from Study
  Country: US (occurrence: US)
  Receive Date: 20241018
  Receipt Date: 20241018
  Transmission Date: 20250114
  Serious: No
  Sender: ROCHE
  Company Number: US-ROCHE-3438122

PATIENT
  Age: 63 Year
  Sex: Male

DRUGS (1)
  1. CATHFLO ACTIVASE [Suspect]
     Active Substance: ALTEPLASE
     Indication: Pleural effusion
     Dosage: VIA CHEST TUBE?DATE OF SERVICE: 20/JUN/2023, 22/JUN/2023 AND 23/JUN/2023?20 MG DATE OF SERVICE: 21/J
     Route: 034

REACTIONS (2)
  - Off label use [Unknown]
  - No adverse event [Unknown]
